FAERS Safety Report 5925221-8 (Version None)
Quarter: 2008Q4

REPORT INFORMATION
  Report Type: 
  Country: None (occurrence: None)
  Receive Date: 20081020
  Receipt Date: 20081020
  Transmission Date: 20090506
  Serious: Yes (Other)
  Sender: FDA-Public Use
  Company Number: None

PATIENT
  Age: 62 Year
  Sex: Female
  Weight: 99.7913 kg

DRUGS (8)
  1. JANUVIA [Suspect]
     Indication: DIABETES MELLITUS
     Dosage: 50MG QD PO
     Route: 048
     Dates: start: 20080801, end: 20081018
  2. LOVASTATIN [Concomitant]
  3. METFORMIN HYDROCHLORIDE [Concomitant]
  4. CLONIDINE [Concomitant]
  5. BENAZAPRIL [Concomitant]
  6. FELODIPINE [Concomitant]
  7. HYDORCHRLOROTHIAZIDE [Concomitant]
  8. ATENOLOL [Concomitant]

REACTIONS (5)
  - DRY SKIN [None]
  - HEADACHE [None]
  - LIP DRY [None]
  - RASH [None]
  - SKIN EXFOLIATION [None]
